FAERS Safety Report 18338200 (Version 4)
Quarter: 2021Q1

REPORT INFORMATION
  Report Type: Spontaneous
  Country: US (occurrence: US)
  Receive Date: 20201002
  Receipt Date: 20210105
  Transmission Date: 20210419
  Serious: No
  Sender: FDA-Public Use
  Company Number: US-PFIZER INC-2018318182

PATIENT
  Age: 11 Year
  Sex: Male

DRUGS (5)
  1. GENOTROPIN [Suspect]
     Active Substance: SOMATROPIN
     Dosage: UNK, 1X/DAY
     Route: 042
     Dates: start: 20180724
  2. GENOTROPIN [Suspect]
     Active Substance: SOMATROPIN
     Dosage: 1.6 MG, DAILY (1.4 MG ONE DAY, AND 1.6 MG ONE DAY BY INJECTION DAILY)
  3. GENOTROPIN [Suspect]
     Active Substance: SOMATROPIN
     Indication: GROWTH HORMONE DEFICIENCY
     Dosage: UNK, ALTERNATE DAY (WAS TAKING 1.0 OR 1.2 MG)
     Route: 042
  4. GENOTROPIN [Suspect]
     Active Substance: SOMATROPIN
     Dosage: 1.4 MG, DAILY (1.4 MG ONE DAY AND 1.6 MG ONE DAY BY INJECTION DAILY)
  5. GENOTROPIN [Suspect]
     Active Substance: SOMATROPIN
     Dosage: UNK
     Dates: start: 20180726

REACTIONS (8)
  - Drug dose omission by device [Unknown]
  - Product use issue [Unknown]
  - Product leakage [Unknown]
  - Wrong technique in device usage process [Unknown]
  - Off label use [Unknown]
  - Device issue [Unknown]
  - Device information output issue [Unknown]
  - Incorrect dose administered by device [Unknown]

NARRATIVE: CASE EVENT DATE: 20200923
